FAERS Safety Report 6317543-6 (Version None)
Quarter: 2009Q3

REPORT INFORMATION
  Report Type: 
  Country: None (occurrence: None)
  Receive Date: 20090821
  Receipt Date: 20090819
  Transmission Date: 20100115
  Serious: Yes (Life-Threatening)
  Sender: FDA-Public Use
  Company Number: CN-ROCHE-646607

PATIENT
  Age: 71 Year
  Sex: Male

DRUGS (1)
  1. ROCEPHIN [Suspect]
     Indication: APPENDICITIS
     Route: 040
     Dates: start: 20090724, end: 20090724

REACTIONS (2)
  - ANAPHYLACTIC SHOCK [None]
  - COMA [None]
